FAERS Safety Report 8267631-2 (Version None)
Quarter: 2012Q2

REPORT INFORMATION
  Report Type: 
  Country: None (occurrence: None)
  Receive Date: 20120409
  Receipt Date: 20120329
  Transmission Date: 20120825
  Serious: Yes (Other)
  Sender: FDA-Public Use
  Company Number: US-ELI_LILLY_AND_COMPANY-US201204000363

PATIENT
  Sex: Female

DRUGS (2)
  1. FORTEO [Suspect]
     Dosage: UNK, EVERY OTHER THIRD DAY
  2. FORTEO [Suspect]
     Dosage: UNK, QD

REACTIONS (4)
  - ARTHRALGIA [None]
  - HIP FRACTURE [None]
  - VERTIGO [None]
  - MEDICATION ERROR [None]
